FAERS Safety Report 24405957 (Version 1)
Quarter: 2024Q4

REPORT INFORMATION
  Report Type: Spontaneous
  Country: US (occurrence: US)
  Receive Date: 20241007
  Receipt Date: 20241007
  Transmission Date: 20250115
  Serious: No
  Sender: BAUSCH AND LOMB
  Company Number: US-BAUSCH-BL-2024-014779

PATIENT
  Sex: Female

DRUGS (1)
  1. XIFAXAN [Suspect]
     Active Substance: RIFAXIMIN
     Indication: Irritable bowel syndrome
     Route: 065

REACTIONS (4)
  - Anxiety [Not Recovered/Not Resolved]
  - Irritable bowel syndrome [Unknown]
  - Symptom recurrence [Unknown]
  - Headache [Not Recovered/Not Resolved]
